FAERS Safety Report 7678782-5 (Version None)
Quarter: 2011Q3

REPORT INFORMATION
  Report Type: 
  Country: None (occurrence: None)
  Receive Date: 20110811
  Receipt Date: 20110808
  Transmission Date: 20111222
  Serious: Yes (Hospitalization, Other)
  Sender: FDA-Public Use
  Company Number: US-RB-030642-11

PATIENT
  Age: 19 Year
  Sex: Male

DRUGS (7)
  1. SUBOXONE [Suspect]
     Route: 045
  2. SUBOXONE [Suspect]
     Indication: PRODUCT USED FOR UNKNOWN INDICATION
     Dosage: SUBLINGUAL FILM; DOSING INFORMATION UNKNOWN
     Route: 065
  3. SUBOXONE [Suspect]
     Indication: DRUG DEPENDENCE
     Route: 060
     Dates: start: 20070101
  4. ALPRAZOLAM [Concomitant]
     Indication: ANXIETY
     Dosage: DOSING INFORMATION UNKNOWN
     Route: 065
  5. TRAZODONE HCL [Concomitant]
     Indication: SLEEP DISORDER
     Dosage: DOSING INFORMATION UNKNOWN
     Route: 065
  6. AMBIEN [Concomitant]
     Indication: SLEEP DISORDER
     Dosage: DOSING INFORMATION UNKNOWN
     Route: 065
  7. BUSPAR [Concomitant]
     Indication: ANXIETY
     Dosage: DOSING INFORMATION UNKNOWN
     Route: 065

REACTIONS (17)
  - CONFUSIONAL STATE [None]
  - MENTAL IMPAIRMENT [None]
  - DEHYDRATION [None]
  - SUBSTANCE ABUSE [None]
  - PAIN [None]
  - DRY MOUTH [None]
  - INTENTIONAL DRUG MISUSE [None]
  - RHINALGIA [None]
  - PARAESTHESIA [None]
  - DRUG WITHDRAWAL SYNDROME [None]
  - DEPRESSION [None]
  - CONVULSION [None]
  - HEPATITIS E [None]
  - UNDERDOSE [None]
  - FALL [None]
  - FACE INJURY [None]
  - ORAL PAIN [None]
